FAERS Safety Report 12400527 (Version 2)
Quarter: 2016Q2

REPORT INFORMATION
  Report Type: Spontaneous
  Country: US (occurrence: US)
  Receive Date: 20160525
  Receipt Date: 20160525
  Transmission Date: 20160815
  Serious: Yes (Other)
  Sender: FDA-Public Use
  Company Number: US-SA-2015SA079188

PATIENT
  Sex: Female

DRUGS (7)
  1. SOLOSTAR [Concomitant]
     Active Substance: DEVICE
     Indication: TYPE 1 DIABETES MELLITUS
  2. HUMALOG [Concomitant]
     Active Substance: INSULIN LISPRO
  3. LANTUS [Suspect]
     Active Substance: INSULIN GLARGINE
     Indication: TYPE 1 DIABETES MELLITUS
     Dosage: VIAL DOSE:24 UNIT(S)
     Route: 065
  4. LANTUS SOLOSTAR [Suspect]
     Active Substance: INSULIN GLARGINE
     Indication: TYPE 1 DIABETES MELLITUS
     Dosage: DOSE: 24 U OR 23 U?FORM: PEN
     Route: 065
  5. LANTUS [Suspect]
     Active Substance: INSULIN GLARGINE
     Indication: TYPE 1 DIABETES MELLITUS
     Dosage: FORM: VIAL DOSE:26 UNIT(S)
     Route: 065
  6. NOVOLOG [Suspect]
     Active Substance: INSULIN ASPART
     Route: 065
  7. SOLOSTAR [Concomitant]
     Active Substance: DEVICE
     Indication: TYPE 1 DIABETES MELLITUS

REACTIONS (6)
  - Blood glucose decreased [Not Recovered/Not Resolved]
  - Dyskinesia [Unknown]
  - Incorrect product storage [Unknown]
  - Blood glucose decreased [Unknown]
  - Blood glucose increased [Unknown]
  - Movement disorder [Unknown]

NARRATIVE: CASE EVENT DATE: 2015
